FAERS Safety Report 4979049-6 (Version None)
Quarter: 2006Q2

REPORT INFORMATION
  Report Type: 
  Country: None (occurrence: None)
  Receive Date: 20060417
  Receipt Date: 20060330
  Transmission Date: 20061013
  Serious: Yes (Hospitalization)
  Sender: FDA-Public Use
  Company Number: WAES 0604CHN00003

PATIENT
  Age: 22 Year
  Sex: Male

DRUGS (1)
  1. VYTORIN [Suspect]
     Indication: DRUG LEVEL
     Dosage: 10 MG/1X PO
     Route: 048
     Dates: start: 20060326, end: 20060326

REACTIONS (8)
  - ATRIOVENTRICULAR BLOCK FIRST DEGREE [None]
  - ATRIOVENTRICULAR BLOCK SECOND DEGREE [None]
  - BLOOD ALKALINE PHOSPHATASE INCREASED [None]
  - BLOOD CREATINE PHOSPHOKINASE MB INCREASED [None]
  - BLOOD LACTATE DEHYDROGENASE INCREASED [None]
  - CARDIAC DISORDER [None]
  - ELECTROCARDIOGRAM ST-T CHANGE [None]
  - VENTRICULAR HYPERTROPHY [None]
